FAERS Safety Report 25358388 (Version 1)
Quarter: 2025Q2

REPORT INFORMATION
  Report Type: Spontaneous
  Country: US (occurrence: US)
  Receive Date: 20250526
  Receipt Date: 20250526
  Transmission Date: 20250717
  Serious: Yes (Other)
  Sender: NAARI PHARMA
  Company Number: US-NAARI PTE LIMITED-2025NP000038

PATIENT
  Age: 21 Year
  Sex: Female

DRUGS (1)
  1. NORGESTIMATE AND ETHINYL ESTRADIOL [Suspect]
     Active Substance: ETHINYL ESTRADIOL\NORGESTIMATE
     Indication: Oral contraception
     Route: 048

REACTIONS (1)
  - Central serous chorioretinopathy [Recovered/Resolved]
